FAERS Safety Report 6846164-1 (Version None)
Quarter: 2010Q3

REPORT INFORMATION
  Report Type: 
  Country: None (occurrence: None)
  Receive Date: 20100715
  Receipt Date: 20070911
  Transmission Date: 20110219
  Serious: No
  Sender: FDA-Public Use
  Company Number: US-PFIZER INC-2007076915

PATIENT
  Sex: Female
  Weight: 106.8 kg

DRUGS (10)
  1. CHANTIX [Suspect]
     Indication: SMOKING CESSATION THERAPY
     Dates: start: 20070904
  2. PREVACID [Concomitant]
     Dates: end: 20070101
  3. NEXIUM [Concomitant]
  4. GLUCOPHAGE [Concomitant]
  5. EFFEXOR [Concomitant]
  6. CELEBREX [Concomitant]
  7. LYRICA [Concomitant]
  8. REQUIP [Concomitant]
  9. ZETIA [Concomitant]
  10. MYLANTA [Concomitant]

REACTIONS (2)
  - DIARRHOEA [None]
  - THINKING ABNORMAL [None]
